FAERS Safety Report 21891030 (Version 2)
Quarter: 2023Q1

REPORT INFORMATION
  Report Type: Report from Study
  Country: US (occurrence: US)
  Receive Date: 20230120
  Receipt Date: 20230214
  Transmission Date: 20230417
  Serious: Yes (Disabling)
  Sender: FDA-Public Use
  Company Number: US-JNJFOC-20230135430

PATIENT
  Age: 60 Year
  Sex: Male

DRUGS (1)
  1. RIVAROXABAN [Suspect]
     Active Substance: RIVAROXABAN
     Indication: IgA nephropathy
     Route: 048
     Dates: start: 202212, end: 20230116

REACTIONS (3)
  - Disability [Unknown]
  - Pain in extremity [Unknown]
  - Off label use [Unknown]
